FAERS Safety Report 19966552 (Version 1)
Quarter: 2021Q4

REPORT INFORMATION
  Report Type: Spontaneous
  Country: US (occurrence: US)
  Receive Date: 20211018
  Receipt Date: 20211018
  Transmission Date: 20220303
  Serious: No
  Sender: FDA-Public Use
  Company Number: US-SANOFI-00811493

PATIENT
  Age: 65 Year
  Sex: Female

DRUGS (1)
  1. ENOXAPARIN SODIUM [Suspect]
     Active Substance: ENOXAPARIN SODIUM
     Indication: Thrombosis prophylaxis
     Dosage: DRUG STRUCTURE DOSAGE : 40ML DRUG INTERVAL DOSAGE : QD FOR 6 WEEKS DRUG TREATMENT DURATION: 3 WEEKS
     Route: 065

REACTIONS (1)
  - Injection site pain [Unknown]
